FAERS Safety Report 8286360-2 (Version None)
Quarter: 2012Q2

REPORT INFORMATION
  Report Type: 
  Country: None (occurrence: None)
  Receive Date: 20120411
  Receipt Date: 20120411
  Transmission Date: 20120825
  Serious: Yes (Hospitalization, Disabling)
  Sender: FDA-Public Use
  Company Number: None

PATIENT
  Age: 33 Year
  Sex: Male
  Weight: 74.8435 kg

DRUGS (1)
  1. EFFEXOR XR [Suspect]
     Indication: DEPRESSION
     Dosage: 35 MG 1-PER DAY

REACTIONS (7)
  - WITHDRAWAL SYNDROME [None]
  - PARKINSONISM [None]
  - HEAD TITUBATION [None]
  - ULCER HAEMORRHAGE [None]
  - AMNESIA [None]
  - TREMOR [None]
  - COLD SWEAT [None]
